FAERS Safety Report 8680353 (Version 2)
Quarter: 2013Q4

REPORT INFORMATION
  Report Type: Spontaneous
  Country: CA (occurrence: CA)
  Receive Date: 20120724
  Receipt Date: 20131114
  Transmission Date: 20140711
  Serious: Yes (Disabling)
  Sender: FDA-Public Use
  Company Number: CA-ASTRAZENECA-2012SE49712

PATIENT
  Age: 69 Year
  Sex: Female

DRUGS (2)
  1. NEXIUM [Suspect]
     Indication: HIATUS HERNIA
     Route: 048
  2. LOSEC [Suspect]
     Indication: HIATUS HERNIA
     Route: 048

REACTIONS (3)
  - Femur fracture [Unknown]
  - Osteopenia [Unknown]
  - Stress fracture [Unknown]
